FAERS Safety Report 15934199 (Version 2)
Quarter: 2019Q2

REPORT INFORMATION
  Report Type: Spontaneous
  Country: US (occurrence: US)
  Receive Date: 20190207
  Receipt Date: 20190412
  Transmission Date: 20190711
  Serious: Yes (Other)
  Sender: FDA-Public Use
  Company Number: US-ASTRAZENECA-2018SE98388

PATIENT
  Age: 21142 Day
  Sex: Female

DRUGS (24)
  1. LISINOPRIL. [Concomitant]
     Active Substance: LISINOPRIL
     Indication: HYPERTENSION
     Dosage: 40.0MG UNKNOWN
  2. NEXIUM [Suspect]
     Active Substance: ESOMEPRAZOLE MAGNESIUM
     Indication: DYSPEPSIA
     Dosage: ESOMEPRAZOLE40.0MG UNKNOWN
     Route: 065
     Dates: start: 20170116, end: 20170215
  3. ACETAMINOPHEN. [Concomitant]
     Active Substance: ACETAMINOPHEN
     Dosage: 325.0MG EVERY 4 - 6 HOURS
  4. BENADRYL [Concomitant]
     Active Substance: DIPHENHYDRAMINE HYDROCHLORIDE
     Dosage: 25.0MG UNKNOWN
  5. BACLOFEN. [Concomitant]
     Active Substance: BACLOFEN
     Indication: ARTHRITIS
     Dosage: 25.0MG UNKNOWN
  6. VOLTAREN [Concomitant]
     Active Substance: DICLOFENAC SODIUM
     Indication: ARTHRITIS
     Dosage: 25.0MG UNKNOWN
  7. NEXIUM [Suspect]
     Active Substance: ESOMEPRAZOLE MAGNESIUM
     Indication: DYSPEPSIA
     Route: 048
     Dates: start: 2015, end: 2016
  8. OXYCODONE [Concomitant]
     Active Substance: OXYCODONE
     Indication: ARTHRITIS
     Dosage: 25.0MG UNKNOWN
  9. PRILOSEC [Suspect]
     Active Substance: OMEPRAZOLE MAGNESIUM
     Indication: DYSPEPSIA
     Dosage: GENERIC20.0MG UNKNOWN
     Route: 048
     Dates: start: 20150306
  10. PROAIR HFA [Concomitant]
     Active Substance: ALBUTEROL SULFATE
  11. ALPHAGAN P [Concomitant]
     Active Substance: BRIMONIDINE TARTRATE
  12. ZANTAC [Concomitant]
     Active Substance: RANITIDINE HYDROCHLORIDE
     Indication: CHRONIC OBSTRUCTIVE PULMONARY DISEASE
     Dosage: 25.0MG UNKNOWN
  13. ROBAXIN [Concomitant]
     Active Substance: METHOCARBAMOL
     Indication: PAIN
     Dosage: 25.0MG UNKNOWN
  14. PRILOSEC [Suspect]
     Active Substance: OMEPRAZOLE MAGNESIUM
     Indication: DYSPEPSIA
     Route: 048
     Dates: start: 2015, end: 2016
  15. PRILOSEC [Suspect]
     Active Substance: OMEPRAZOLE MAGNESIUM
     Indication: DYSPEPSIA
     Dosage: OMEPRAZOLE20.0MG UNKNOWN
     Route: 065
     Dates: start: 20141006, end: 20150105
  16. PROAIR HFA [Concomitant]
     Active Substance: ALBUTEROL SULFATE
     Indication: BRONCHOSPASM
     Dosage: 25.0MG UNKNOWN
  17. OFLOXACIN. [Concomitant]
     Active Substance: OFLOXACIN
     Indication: EAR INFECTION
     Dosage: 25.0MG UNKNOWN
  18. NEXIUM [Suspect]
     Active Substance: ESOMEPRAZOLE MAGNESIUM
     Indication: DYSPEPSIA
     Dosage: 40.0MG UNKNOWN
     Route: 048
     Dates: start: 20150612
  19. PRILOSEC [Suspect]
     Active Substance: OMEPRAZOLE MAGNESIUM
     Indication: DYSPEPSIA
     Dosage: UNKNOWN
     Route: 048
     Dates: start: 20150128, end: 20150306
  20. ENDOCET [Concomitant]
     Active Substance: ACETAMINOPHEN\OXYCODONE HYDROCHLORIDE
     Indication: PAIN
     Dosage: 25.0MG UNKNOWN
  21. NEURONTIN [Concomitant]
     Active Substance: GABAPENTIN
     Indication: PAIN
     Dosage: 25.0MG UNKNOWN
  22. NEXIUM [Suspect]
     Active Substance: ESOMEPRAZOLE MAGNESIUM
     Indication: DYSPEPSIA
     Dosage: 40.0MG UNKNOWN
     Route: 048
     Dates: start: 20150205, end: 20161214
  23. PRILOSEC [Suspect]
     Active Substance: OMEPRAZOLE MAGNESIUM
     Indication: DYSPEPSIA
     Dosage: OMEPRAZOLE20.0MG UNKNOWN
     Route: 065
     Dates: start: 20130606, end: 20140502
  24. VICODIN [Concomitant]
     Active Substance: ACETAMINOPHEN\HYDROCODONE BITARTRATE
     Indication: PAIN
     Dosage: 25.0MG UNKNOWN

REACTIONS (2)
  - Renal failure [Unknown]
  - Chronic kidney disease [Not Recovered/Not Resolved]

NARRATIVE: CASE EVENT DATE: 20150306
